FAERS Safety Report 15371529 (Version 3)
Quarter: 2022Q2

REPORT INFORMATION
  Report Type: Spontaneous
  Country: BR (occurrence: BR)
  Receive Date: 20180911
  Receipt Date: 20220414
  Transmission Date: 20220720
  Serious: No
  Sender: FDA-Public Use
  Company Number: PHHY2018BR089490

PATIENT
  Sex: Male
  Weight: 38 kg

DRUGS (4)
  1. METHYLPHENIDATE HYDROCHLORIDE [Suspect]
     Active Substance: METHYLPHENIDATE HYDROCHLORIDE
     Indication: Attention deficit hyperactivity disorder
     Dosage: 1 DOSAGE FORM, QD
     Route: 048
  2. RITALIN LA [Suspect]
     Active Substance: METHYLPHENIDATE HYDROCHLORIDE
     Indication: Attention deficit hyperactivity disorder
     Dosage: 1 DOSAGE FORM, QD
     Route: 048
  3. RITALIN LA [Suspect]
     Active Substance: METHYLPHENIDATE HYDROCHLORIDE
     Dosage: 1 DOSAGE FORM, QOD
     Route: 048
  4. CONCERTA [Suspect]
     Active Substance: METHYLPHENIDATE HYDROCHLORIDE
     Indication: Product used for unknown indication
     Route: 065

REACTIONS (5)
  - Irritability [Unknown]
  - Disorientation [Unknown]
  - Tachycardia [Recovered/Resolved]
  - Disturbance in attention [Unknown]
  - Drug ineffective [Unknown]
